FAERS Safety Report 19962962 (Version 1)
Quarter: 2021Q4

REPORT INFORMATION
  Report Type: Spontaneous
  Country: FR (occurrence: FR)
  Receive Date: 20211018
  Receipt Date: 20211018
  Transmission Date: 20220303
  Serious: Yes (Death)
  Sender: FDA-Public Use
  Company Number: None

PATIENT
  Age: 72 Year
  Sex: Male
  Weight: 65 kg

DRUGS (2)
  1. OXALIPLATIN [Interacting]
     Active Substance: OXALIPLATIN
     Indication: Adenocarcinoma of colon
     Dosage: INCONNUE
     Route: 042
     Dates: start: 202104, end: 20210507
  2. FLUOROURACIL [Interacting]
     Active Substance: FLUOROURACIL
     Indication: Adenocarcinoma of colon
     Dosage: INCONNUE
     Route: 042
     Dates: start: 202104, end: 20210507

REACTIONS (3)
  - Septic shock [Fatal]
  - Drug interaction [Fatal]
  - Aplasia [Fatal]

NARRATIVE: CASE EVENT DATE: 20210514
